FAERS Safety Report 17827386 (Version 1)
Quarter: 2020Q2

REPORT INFORMATION
  Report Type: Spontaneous
  Country: JP (occurrence: JP)
  Receive Date: 20200527
  Receipt Date: 20200527
  Transmission Date: 20200714
  Serious: Yes (Other)
  Sender: FDA-Public Use
  Company Number: JP-TEVA-2020-JP-003646J

PATIENT
  Sex: Male

DRUGS (1)
  1. BICALUTAMIDE TABLET 80MG ^TEVA^ [Suspect]
     Active Substance: BICALUTAMIDE
     Indication: PRODUCT USED FOR UNKNOWN INDICATION
     Route: 048

REACTIONS (7)
  - Feeling of body temperature change [Unknown]
  - Pollakiuria [Unknown]
  - Hyperhidrosis [Unknown]
  - Urinary tract obstruction [Unknown]
  - Hot flush [Unknown]
  - Middle insomnia [Unknown]
  - Body temperature fluctuation [Unknown]
